FAERS Safety Report 16414167 (Version 3)
Quarter: 2019Q3

REPORT INFORMATION
  Report Type: Spontaneous
  Country: CO (occurrence: CO)
  Receive Date: 20190611
  Receipt Date: 20190919
  Transmission Date: 20191004
  Serious: Yes (Other)
  Sender: FDA-Public Use
  Company Number: CO-AMGEN-COLSP2018048376

PATIENT
  Age: 57 Year
  Sex: Female

DRUGS (1)
  1. ENBREL [Suspect]
     Active Substance: ETANERCEPT
     Indication: RHEUMATOID ARTHRITIS
     Dosage: 50 MG, UNK
     Route: 058
     Dates: start: 2009

REACTIONS (5)
  - Gastritis [Unknown]
  - Neoplasm [Not Recovered/Not Resolved]
  - Injection site swelling [Recovered/Resolved]
  - Abdominal pain upper [Unknown]
  - Renal disorder [Unknown]

NARRATIVE: CASE EVENT DATE: 20180405
